FAERS Safety Report 14248686 (Version 1)
Quarter: 2017Q4

REPORT INFORMATION
  Report Type: Spontaneous
  Country: PR (occurrence: PR)
  Receive Date: 20171203
  Receipt Date: 20171203
  Transmission Date: 20180321
  Serious: Yes (Death, Hospitalization)
  Sender: FDA-Public Use
  Company Number: None

PATIENT
  Age: 69 Year
  Sex: Female
  Weight: 68.4 kg

DRUGS (7)
  1. REMICADE [Suspect]
     Active Substance: INFLIXIMAB
     Indication: COLITIS ULCERATIVE
     Dosage: INTRAVENOUS (NOT OTHERWISE SPECIFIED)
     Route: 042
     Dates: start: 20171103, end: 20171103
  2. ATENOLOL. [Concomitant]
     Active Substance: ATENOLOL
  3. PAXIL [Concomitant]
     Active Substance: PAROXETINE HYDROCHLORIDE
  4. CYMBALTA [Concomitant]
     Active Substance: DULOXETINE HYDROCHLORIDE
  5. CLONOPIN [Concomitant]
     Active Substance: CLONAZEPAM
  6. PREDNISOLONE. [Concomitant]
     Active Substance: PREDNISOLONE
  7. LISINOPRIL. [Concomitant]
     Active Substance: LISINOPRIL

REACTIONS (10)
  - Muscular weakness [None]
  - Pyrexia [None]
  - Pneumonia [None]
  - Acute respiratory distress syndrome [None]
  - Chest discomfort [None]
  - Hyperkalaemia [None]
  - End stage renal disease [None]
  - Multi-organ disorder [None]
  - Haemodialysis [None]
  - Septic shock [None]

NARRATIVE: CASE EVENT DATE: 20171109
